FAERS Safety Report 19847285 (Version 2)
Quarter: 2021Q4

REPORT INFORMATION
  Report Type: Spontaneous
  Country: US (occurrence: US)
  Receive Date: 20210917
  Receipt Date: 20211013
  Transmission Date: 20220303
  Serious: Yes (Other)
  Sender: FDA-Public Use
  Company Number: None

PATIENT
  Age: 74 Year
  Sex: Male

DRUGS (7)
  1. OLANZAPINE [Suspect]
     Active Substance: OLANZAPINE
     Indication: Psychotic disorder
     Dosage: 10 MILLIGRAM, QD
     Route: 065
     Dates: start: 2005
  2. OLANZAPINE [Suspect]
     Active Substance: OLANZAPINE
     Indication: Affective disorder
  3. OLANZAPINE [Suspect]
     Active Substance: OLANZAPINE
     Indication: Major depression
  4. DULOXETINE [Suspect]
     Active Substance: DULOXETINE
     Indication: Affective disorder
     Dosage: 60 MILLIGRAM, QD
     Route: 065
     Dates: start: 2005
  5. DULOXETINE [Suspect]
     Active Substance: DULOXETINE
     Indication: Major depression
  6. CLONAZEPAM [Suspect]
     Active Substance: CLONAZEPAM
     Indication: Affective disorder
     Dosage: 0.5 MILLIGRAM, QD
     Route: 065
     Dates: start: 2005
  7. CLONAZEPAM [Suspect]
     Active Substance: CLONAZEPAM
     Indication: Major depression

REACTIONS (4)
  - Dysphagia [Unknown]
  - Condition aggravated [Unknown]
  - Drooling [Unknown]
  - Parkinsonism [Unknown]
